FAERS Safety Report 18849869 (Version 1)
Quarter: 2021Q1

REPORT INFORMATION
  Report Type: Spontaneous
  Country: US (occurrence: US)
  Receive Date: 20210204
  Receipt Date: 20210204
  Transmission Date: 20210420
  Serious: No
  Sender: FDA-Public Use
  Company Number: US-TEVA-2021-US-1875036

PATIENT
  Sex: Female

DRUGS (2)
  1. AUSTEDO [Suspect]
     Active Substance: DEUTETRABENAZINE
     Dosage: 18 MILLIGRAM DAILY; IS CURRENTLY TAKING 9MG TWICE A DAY
     Route: 065
  2. AUSTEDO [Suspect]
     Active Substance: DEUTETRABENAZINE
     Indication: HUNTINGTON^S DISEASE
     Route: 065
     Dates: start: 20190101

REACTIONS (2)
  - Drug ineffective [Unknown]
  - Inability to afford medication [Unknown]
